FAERS Safety Report 26130631 (Version 1)
Quarter: 2025Q4

REPORT INFORMATION
  Report Type: Spontaneous
  Country: GB (occurrence: GB)
  Receive Date: 20251208
  Receipt Date: 20251208
  Transmission Date: 20260117
  Serious: Yes (Other)
  Sender: MYLAN
  Company Number: None

PATIENT
  Age: 58 Year
  Sex: Male
  Weight: 173 kg

DRUGS (20)
  1. AMLODIPINE [Suspect]
     Active Substance: AMLODIPINE BESYLATE
     Indication: Ill-defined disorder
     Dosage: UNK
  2. AMLODIPINE [Suspect]
     Active Substance: AMLODIPINE BESYLATE
     Dosage: UNK
     Route: 065
  3. AMLODIPINE [Suspect]
     Active Substance: AMLODIPINE BESYLATE
     Dosage: UNK
     Route: 065
  4. AMLODIPINE [Suspect]
     Active Substance: AMLODIPINE BESYLATE
     Dosage: UNK
  5. PREGABALIN [Concomitant]
     Active Substance: PREGABALIN
     Indication: Ill-defined disorder
     Dosage: 1 DOSAGE FORM, TID (TAKE ONE CAPSULE THREE TIMES DAILY)
     Dates: start: 20240809
  6. PREGABALIN [Concomitant]
     Active Substance: PREGABALIN
     Dosage: 1 DOSAGE FORM, TID (TAKE ONE CAPSULE THREE TIMES DAILY)
     Route: 065
     Dates: start: 20240809
  7. PREGABALIN [Concomitant]
     Active Substance: PREGABALIN
     Dosage: 1 DOSAGE FORM, TID (TAKE ONE CAPSULE THREE TIMES DAILY)
     Route: 065
     Dates: start: 20240809
  8. PREGABALIN [Concomitant]
     Active Substance: PREGABALIN
     Dosage: 1 DOSAGE FORM, TID (TAKE ONE CAPSULE THREE TIMES DAILY)
     Dates: start: 20240809
  9. LOSARTAN [Concomitant]
     Active Substance: LOSARTAN
     Indication: Ill-defined disorder
     Dosage: 1 DOSAGE FORM, QD (TAKE ONE DAILY)
     Dates: start: 20241202
  10. LOSARTAN [Concomitant]
     Active Substance: LOSARTAN
     Dosage: 1 DOSAGE FORM, QD (TAKE ONE DAILY)
     Route: 065
     Dates: start: 20241202
  11. LOSARTAN [Concomitant]
     Active Substance: LOSARTAN
     Dosage: 1 DOSAGE FORM, QD (TAKE ONE DAILY)
     Route: 065
     Dates: start: 20241202
  12. LOSARTAN [Concomitant]
     Active Substance: LOSARTAN
     Dosage: 1 DOSAGE FORM, QD (TAKE ONE DAILY)
     Dates: start: 20241202
  13. CINACALCET [Concomitant]
     Active Substance: CINACALCET
     Indication: Ill-defined disorder
     Dosage: UNK, BID (TWICE A DAY ON MON, WED, FRI ONLY (AMBER DRUG W.)
     Dates: start: 20251015
  14. CINACALCET [Concomitant]
     Active Substance: CINACALCET
     Dosage: UNK, BID (TWICE A DAY ON MON, WED, FRI ONLY (AMBER DRUG W.)
     Route: 065
     Dates: start: 20251015
  15. CINACALCET [Concomitant]
     Active Substance: CINACALCET
     Dosage: UNK, BID (TWICE A DAY ON MON, WED, FRI ONLY (AMBER DRUG W.)
     Route: 065
     Dates: start: 20251015
  16. CINACALCET [Concomitant]
     Active Substance: CINACALCET
     Dosage: UNK, BID (TWICE A DAY ON MON, WED, FRI ONLY (AMBER DRUG W.)
     Dates: start: 20251015
  17. INDAPAMIDE [Concomitant]
     Active Substance: INDAPAMIDE
     Indication: Ill-defined disorder
     Dosage: 1 DOSAGE FORM, AM
     Dates: start: 20251121
  18. INDAPAMIDE [Concomitant]
     Active Substance: INDAPAMIDE
     Dosage: 1 DOSAGE FORM, AM
     Route: 065
     Dates: start: 20251121
  19. INDAPAMIDE [Concomitant]
     Active Substance: INDAPAMIDE
     Dosage: 1 DOSAGE FORM, AM
     Route: 065
     Dates: start: 20251121
  20. INDAPAMIDE [Concomitant]
     Active Substance: INDAPAMIDE
     Dosage: 1 DOSAGE FORM, AM
     Dates: start: 20251121

REACTIONS (1)
  - Thrombosis [Recovered/Resolved]

NARRATIVE: CASE EVENT DATE: 20251121
